FAERS Safety Report 8128297-5 (Version None)
Quarter: 2012Q1

REPORT INFORMATION
  Report Type: 
  Country: None (occurrence: None)
  Receive Date: 20120210
  Receipt Date: 20120207
  Transmission Date: 20120608
  Serious: Yes (Death)
  Sender: FDA-Public Use
  Company Number: KP-ROXANE LABORATORIES, INC.-2012-RO-00618RO

PATIENT
  Age: 51 Year
  Sex: Female

DRUGS (6)
  1. METHOTREXATE [Suspect]
     Dosage: 12 MG
     Route: 037
  2. LEUCOVORIN CALCIUM [Suspect]
     Indication: DRUG TOXICITY PROPHYLAXIS
     Route: 042
  3. LEUCOVORIN CALCIUM [Suspect]
     Dosage: 20 MG
     Route: 048
  4. VINCRISTINE [Suspect]
     Indication: CENTRAL NERVOUS SYSTEM LYMPHOMA
     Route: 042
  5. PROCARBAZINE HYDROCHLORIDE [Suspect]
     Indication: CENTRAL NERVOUS SYSTEM LYMPHOMA
  6. METHOTREXATE [Suspect]
     Indication: CENTRAL NERVOUS SYSTEM LYMPHOMA
     Route: 042

REACTIONS (1)
  - LEUKOENCEPHALOPATHY [None]
